FAERS Safety Report 20091740 (Version 2)
Quarter: 2021Q4

REPORT INFORMATION
  Report Type: Spontaneous
  Country: US (occurrence: US)
  Receive Date: 20211119
  Receipt Date: 20211124
  Transmission Date: 20220304
  Serious: Yes (Death, Hospitalization, Other)
  Sender: FDA-Public Use
  Company Number: US-009507513-2111USA006647

PATIENT
  Sex: Male

DRUGS (3)
  1. DIFICID [Suspect]
     Active Substance: FIDAXOMICIN
     Indication: Clostridium difficile infection
     Dosage: 200 MILLIGRAM
     Route: 048
     Dates: start: 202105, end: 2021
  2. DIFICID [Suspect]
     Active Substance: FIDAXOMICIN
     Dosage: 200 MILLIGRAM
     Route: 048
     Dates: start: 20210609, end: 2021
  3. DIFICID [Suspect]
     Active Substance: FIDAXOMICIN
     Dosage: 200 MILLIGRAM
     Route: 048
     Dates: start: 20210921, end: 202109

REACTIONS (10)
  - Hypovolaemia [Fatal]
  - Hypophagia [Fatal]
  - Prostate cancer metastatic [Fatal]
  - Sepsis [Unknown]
  - Urinary tract infection [Unknown]
  - Adverse event [Unknown]
  - Gastrooesophageal reflux disease [Unknown]
  - Clostridium difficile infection [Recovered/Resolved]
  - Ill-defined disorder [Unknown]
  - Adverse event [Unknown]

NARRATIVE: CASE EVENT DATE: 20210101
